FAERS Safety Report 9437288 (Version 2)
Quarter: 2013Q3

REPORT INFORMATION
  Report Type: Spontaneous
  Country: PA (occurrence: None)
  Receive Date: 20130731
  Receipt Date: 20130909
  Transmission Date: 20140515
  Serious: Yes (Death)
  Sender: FDA-Public Use
  Company Number: 1818247

PATIENT
  Sex: 0

DRUGS (1)
  1. DEXTROSE [Suspect]

REACTIONS (1)
  - Death [None]
